FAERS Safety Report 11752356 (Version 3)
Quarter: 2016Q2

REPORT INFORMATION
  Report Type: Spontaneous
  Country: GB (occurrence: GB)
  Receive Date: 20151118
  Receipt Date: 20160502
  Transmission Date: 20160815
  Serious: Yes (Other)
  Sender: FDA-Public Use
  Company Number: GB-APOTEX-2015AP014533

PATIENT
  Age: 54 Year
  Sex: Male

DRUGS (6)
  1. IBANDRONATE APOTEX FILM-COATED TABLETS [Suspect]
     Active Substance: IBANDRONATE SODIUM
     Indication: PRODUCT USED FOR UNKNOWN INDICATION
     Dosage: 150 MG, Q.M.T.
     Route: 065
  2. CALCHICHEW D3 FORTE [Concomitant]
     Indication: PRODUCT USED FOR UNKNOWN INDICATION
     Route: 065
  3. PREDNISOLONE. [Suspect]
     Active Substance: PREDNISOLONE
     Indication: BRONCHOPULMONARY ASPERGILLOSIS ALLERGIC
     Dosage: 10 MG, UNK
     Route: 065
  4. CIPROFLOXACIN. [Suspect]
     Active Substance: CIPROFLOXACIN
     Indication: INFECTIVE PULMONARY EXACERBATION OF CYSTIC FIBROSIS
     Dosage: 1 G, BID
     Route: 048
  5. ITRACONAZOLE. [Concomitant]
     Active Substance: ITRACONAZOLE
     Indication: PRODUCT USED FOR UNKNOWN INDICATION
     Route: 065
  6. ALENDRONATE [Suspect]
     Active Substance: ALENDRONATE SODIUM
     Indication: PRODUCT USED FOR UNKNOWN INDICATION
     Route: 065

REACTIONS (9)
  - Glucose tolerance impaired [Unknown]
  - Hypertension [Unknown]
  - Staphylococcal infection [Unknown]
  - Hypercholesterolaemia [Unknown]
  - Sleep apnoea syndrome [Unknown]
  - Body mass index increased [Unknown]
  - Pancreatic insufficiency [Unknown]
  - Atypical femur fracture [Unknown]
  - Acute respiratory failure [Unknown]
